FAERS Safety Report 9436824 (Version 1)
Quarter: 2013Q3

REPORT INFORMATION
  Report Type: Spontaneous
  Country: GB (occurrence: GB)
  Receive Date: 20130802
  Receipt Date: 20130802
  Transmission Date: 20140515
  Serious: Yes (Disabling)
  Sender: FDA-Public Use
  Company Number: GB-RANBAXY-2013R1-71657

PATIENT
  Age: 56 Year
  Sex: Female
  Weight: 70 kg

DRUGS (6)
  1. NAPROXEN [Suspect]
     Indication: ARTHRALGIA
     Dosage: UNK
     Route: 048
     Dates: start: 20130610, end: 20130612
  2. ANASTROZOLE [Concomitant]
     Indication: BREAST CANCER
     Dosage: 1 MG, QD
     Route: 065
     Dates: start: 2011
  3. BISACODYL [Concomitant]
     Indication: CONSTIPATION
     Dosage: 5 MG, QD
     Route: 048
  4. CO-CARELDOPA [Concomitant]
     Indication: PARKINSON^S DISEASE
     Dosage: 5 DF, QD
     Route: 048
  5. REQUIP XL [Concomitant]
     Indication: PRODUCT USED FOR UNKNOWN INDICATION
     Dosage: 28 MG, QD
     Route: 048
  6. TRAMADOL [Concomitant]
     Indication: ARTHRALGIA
     Dosage: 1 DF, PRN
     Route: 065

REACTIONS (2)
  - Freezing phenomenon [Recovered/Resolved]
  - Hypokinesia [Recovered/Resolved]
